FAERS Safety Report 5138024-1 (Version None)
Quarter: 2006Q4

REPORT INFORMATION
  Report Type: 
  Country: None (occurrence: None)
  Receive Date: 20061030
  Receipt Date: 20060403
  Transmission Date: 20070319
  Serious: No
  Sender: FDA-Public Use
  Company Number: US-GLAXOSMITHKLINE-A0600120A

PATIENT
  Age: 84 Year
  Sex: Female

DRUGS (2)
  1. ADVAIR HFA [Suspect]
     Indication: ASTHMA
     Dosage: 1PUFF TWICE PER DAY
     Route: 055
     Dates: start: 20060326, end: 20060329
  2. TOPROL-XL [Concomitant]

REACTIONS (3)
  - DIPLOPIA [None]
  - NAUSEA [None]
  - VOMITING [None]
